FAERS Safety Report 24021475 (Version 1)
Quarter: 2024Q2

REPORT INFORMATION
  Report Type: Report from Study
  Country: CN (occurrence: CN)
  Receive Date: 20240627
  Receipt Date: 20240627
  Transmission Date: 20240715
  Serious: No
  Sender: FDA-Public Use
  Company Number: CN-ROCHE-3564329

PATIENT
  Age: 28 Year
  Sex: Male

DRUGS (4)
  1. GLOFITAMAB [Suspect]
     Active Substance: GLOFITAMAB
     Indication: B-cell lymphoma
     Route: 042
     Dates: start: 20240427
  2. GLOFITAMAB [Suspect]
     Active Substance: GLOFITAMAB
     Route: 042
     Dates: start: 20240504
  3. POLATUZUMAB VEDOTIN [Suspect]
     Active Substance: POLATUZUMAB VEDOTIN
     Indication: B-cell lymphoma
     Route: 042
     Dates: start: 20240420
  4. OBINUTUZUMAB [Suspect]
     Active Substance: OBINUTUZUMAB
     Indication: B-cell lymphoma
     Route: 042
     Dates: start: 20240420

REACTIONS (7)
  - Pyrexia [Recovering/Resolving]
  - Abdominal mass [Recovering/Resolving]
  - Hypoxia [Recovering/Resolving]
  - Inflammatory marker increased [Recovering/Resolving]
  - Pleural effusion [Recovering/Resolving]
  - Cytokine release syndrome [Recovering/Resolving]
  - Abdominal pain [Recovering/Resolving]
